FAERS Safety Report 9022003 (Version 1)
Quarter: 2013Q1

REPORT INFORMATION
  Report Type: Report from Study
  Country: CA (occurrence: CA)
  Receive Date: 20130118
  Receipt Date: 20130118
  Transmission Date: 20140127
  Serious: Yes (Other)
  Sender: FDA-Public Use
  Company Number: CA-ROCHE-1179330

PATIENT
  Age: 36 None
  Sex: Male

DRUGS (3)
  1. OMALIZUMAB [Suspect]
     Indication: ASTHMA
     Route: 065
     Dates: start: 20060411
  2. ADVAIR [Concomitant]
  3. VENTOLIN [Concomitant]

REACTIONS (16)
  - Asthma [Unknown]
  - Hypersensitivity [Unknown]
  - Nasopharyngitis [Unknown]
  - Eye pruritus [Recovered/Resolved]
  - Pulmonary congestion [Unknown]
  - Influenza [Unknown]
  - Tooth abscess [Unknown]
  - Malaise [Unknown]
  - Malaise [Unknown]
  - Sinus congestion [Unknown]
  - Pyrexia [Unknown]
  - Erythema [Unknown]
  - Fatigue [Unknown]
  - Fatigue [Unknown]
  - Cough [Unknown]
  - Influenza like illness [Unknown]
